FAERS Safety Report 20885330 (Version 1)
Quarter: 2022Q2

REPORT INFORMATION
  Report Type: Spontaneous
  Country: US (occurrence: None)
  Receive Date: 20220527
  Receipt Date: 20220527
  Transmission Date: 20220721
  Serious: Yes (unspecified)
  Sender: FDA-Public Use
  Company Number: None

PATIENT
  Age: 41 Year
  Sex: Female
  Weight: 82.35 kg

DRUGS (1)
  1. BEBTELOVIMAB [Suspect]
     Active Substance: BEBTELOVIMAB
     Indication: COVID-19
     Dates: start: 20220509, end: 20220509

REACTIONS (10)
  - Chest discomfort [None]
  - Dyspnoea [None]
  - Flushing [None]
  - Hyperhidrosis [None]
  - Blood pressure increased [None]
  - Pruritus [None]
  - Pyrexia [None]
  - Chills [None]
  - Fatigue [None]
  - Hypersensitivity [None]

NARRATIVE: CASE EVENT DATE: 20220509
